FAERS Safety Report 4286440-2 (Version None)
Quarter: 2004Q1

REPORT INFORMATION
  Report Type: 
  Country: None (occurrence: None)
  Receive Date: 20040204
  Receipt Date: 20040126
  Transmission Date: 20041129
  Serious: No
  Sender: FDA-Public Use
  Company Number: 2003UW13874

PATIENT
  Age: 23 Year
  Sex: Male
  Weight: 102.9665 kg

DRUGS (4)
  1. SEROQUEL [Suspect]
     Indication: PSYCHOTIC DISORDER
     Dosage: 500 MG BID PO
     Route: 048
     Dates: start: 20030129, end: 20031108
  2. SEROQUEL [Suspect]
     Indication: PSYCHOTIC DISORDER
     Dosage: TAPERED OFF AT 100 MG DECREASE PER WEEK
     Dates: end: 20031108
  3. DEPAKOTE [Concomitant]
  4. ATENOLOL [Concomitant]

REACTIONS (2)
  - NEUTROPHIL COUNT DECREASED [None]
  - WHITE BLOOD CELL COUNT DECREASED [None]
